FAERS Safety Report 9312681 (Version 2)
Quarter: 2013Q2

REPORT INFORMATION
  Report Type: Spontaneous
  Country: US (occurrence: US)
  Receive Date: 20130528
  Receipt Date: 20130604
  Transmission Date: 20140414
  Serious: Yes (Hospitalization)
  Sender: FDA-Public Use
  Company Number: US-ABBOTT-13P-163-1067030-00

PATIENT
  Sex: Male

DRUGS (5)
  1. ANDROGEL [Suspect]
     Indication: BLOOD TESTOSTERONE DECREASED
     Dosage: PACKETS
     Dates: start: 1999, end: 2000
  2. ANDROGEL [Suspect]
     Dates: start: 2002, end: 2007
  3. ANDROGEL [Suspect]
     Indication: BLOOD TESTOSTERONE DECREASED
     Dosage: 2 PUMPS DAILY
     Dates: start: 20130315
  4. TESTOSTERONE [Suspect]
     Indication: PRODUCT USED FOR UNKNOWN INDICATION
  5. TESTOSTERONE [Suspect]
     Dates: start: 2007, end: 201302

REACTIONS (7)
  - Cardiomyopathy [Unknown]
  - Palpitations [Unknown]
  - Basal cell carcinoma [Recovered/Resolved]
  - Squamous cell carcinoma [Recovered/Resolved]
  - Hypertension [Unknown]
  - Back disorder [Unknown]
  - Acne [Unknown]
